FAERS Safety Report 7658321-5 (Version None)
Quarter: 2011Q3

REPORT INFORMATION
  Report Type: 
  Country: None (occurrence: None)
  Receive Date: 20110805
  Receipt Date: 20110802
  Transmission Date: 20111222
  Serious: No
  Sender: FDA-Public Use
  Company Number: US-PFIZER INC-2011160046

PATIENT
  Sex: Male
  Weight: 80.5 kg

DRUGS (2)
  1. LYRICA [Suspect]
     Indication: POLYNEUROPATHY
     Dosage: 25 MG, 2X/DAY
     Route: 048
     Dates: start: 20110601
  2. LYRICA [Suspect]
     Dosage: 50 MG, 2X/DAY
     Dates: start: 20110701

REACTIONS (5)
  - DRUG EFFECT DECREASED [None]
  - HYPOAESTHESIA [None]
  - MYALGIA [None]
  - WEIGHT INCREASED [None]
  - MUSCULAR WEAKNESS [None]
